FAERS Safety Report 16122335 (Version 1)
Quarter: 2019Q1

REPORT INFORMATION
  Report Type: Spontaneous
  Country: US (occurrence: US)
  Receive Date: 20190222
  Receipt Date: 20190222
  Transmission Date: 20190418
  Serious: Yes (Other)
  Sender: FDA-Public Use
  Company Number: None

PATIENT
  Age: 67 Year
  Sex: Female

DRUGS (17)
  1. BACLOFEN. [Concomitant]
     Active Substance: BACLOFEN
  2. IRON SLOW [Concomitant]
  3. METOPROL SUC [Concomitant]
  4. OMEPRAZOLE. [Concomitant]
     Active Substance: OMEPRAZOLE
  5. SYMBICORT [Concomitant]
     Active Substance: BUDESONIDE\FORMOTEROL FUMARATE DIHYDRATE
  6. TYLENOL [Concomitant]
     Active Substance: ACETAMINOPHEN
  7. URSODIOL. [Concomitant]
     Active Substance: URSODIOL
  8. VITAMIN D3 [Concomitant]
     Active Substance: CHOLECALCIFEROL
  9. ALBUMIN-ZLB [Concomitant]
  10. CLOPIDOGREL [Concomitant]
     Active Substance: CLOPIDOGREL BISULFATE
  11. VIRTUSSIN [Concomitant]
  12. OCALIVA [Suspect]
     Active Substance: OBETICHOLIC ACID
     Indication: BRONCHIECTASIS
     Route: 048
     Dates: start: 20170302
  13. CARTIA [Concomitant]
  14. PREDNISONE. [Concomitant]
     Active Substance: PREDNISONE
  15. DILTIAZEM. [Concomitant]
     Active Substance: DILTIAZEM
  16. MELOXICAM. [Concomitant]
     Active Substance: MELOXICAM
  17. PILOCARPINE. [Concomitant]
     Active Substance: PILOCARPINE

REACTIONS (3)
  - Product dose omission [None]
  - Condition aggravated [None]
  - Hepatic cirrhosis [None]
